FAERS Safety Report 16073824 (Version 1)
Quarter: 2019Q1

REPORT INFORMATION
  Report Type: Spontaneous
  Country: CA (occurrence: CA)
  Receive Date: 20190314
  Receipt Date: 20190314
  Transmission Date: 20190418
  Serious: Yes (Death, Hospitalization, Other)
  Sender: FDA-Public Use
  Company Number: CA-SAMSUNG BIOEPIS-SB-2019-05716

PATIENT
  Age: 77 Year
  Sex: Male

DRUGS (4)
  1. INFLIXIMAB [Suspect]
     Active Substance: INFLIXIMAB
     Indication: COLITIS
     Route: 065
  2. APO-PREDNISONE [Suspect]
     Active Substance: PREDNISONE
     Indication: STEROID THERAPY
     Route: 065
  3. APO-AZATHIOPRINE [Suspect]
     Active Substance: AZATHIOPRINE
     Indication: COLITIS
     Dosage: UNKNOWN
     Route: 065
  4. MESALAZINE [Suspect]
     Active Substance: MESALAMINE
     Indication: COLITIS
     Dosage: UNKNOWN
     Route: 065

REACTIONS (6)
  - Histoplasmosis [Fatal]
  - Haemophagocytic lymphohistiocytosis [Fatal]
  - Cytomegalovirus colitis [Fatal]
  - Cytomegalovirus viraemia [Fatal]
  - Drug use disorder [Fatal]
  - Drug ineffective [Fatal]
